FAERS Safety Report 8845265 (Version 1)
Quarter: 2012Q4

REPORT INFORMATION
  Report Type: 
  Country: MX (occurrence: MX)
  Receive Date: 20121017
  Receipt Date: 20121017
  Transmission Date: 20130627
  Serious: Yes (Other)
  Sender: FDA-Public Use
  Company Number: MX-PFIZER INC-2012254929

PATIENT
  Age: 50 Year
  Sex: Female

DRUGS (1)
  1. LIPITOR [Suspect]
     Dosage: 160 mg, 1x/day
     Route: 048

REACTIONS (2)
  - Toxic neuropathy [Recovering/Resolving]
  - Blood creatine phosphokinase increased [Recovering/Resolving]
